FAERS Safety Report 6631492-5 (Version None)
Quarter: 2010Q1

REPORT INFORMATION
  Report Type: 
  Country: None (occurrence: None)
  Receive Date: 20100312
  Receipt Date: 20100301
  Transmission Date: 20100710
  Serious: Yes (Hospitalization)
  Sender: FDA-Public Use
  Company Number: PHHY2010AU12377

PATIENT
  Sex: Female

DRUGS (1)
  1. CLOZARIL [Suspect]
     Dosage: 600 MG
     Dates: start: 20071112

REACTIONS (3)
  - DRUG DOSE OMISSION [None]
  - MALAISE [None]
  - MENTAL DISORDER [None]
